FAERS Safety Report 5040658-X (Version None)
Quarter: 2006Q2

REPORT INFORMATION
  Report Type: 
  Country: None (occurrence: None)
  Receive Date: 20060629
  Receipt Date: 20060629
  Transmission Date: 20061013
  Serious: Yes (Hospitalization)
  Sender: FDA-Public Use
  Company Number: None

PATIENT
  Age: 57 Year
  Sex: Male
  Weight: 57.1532 kg

DRUGS (2)
  1. CLOPIDOGREL [Suspect]
     Indication: CEREBROVASCULAR ACCIDENT
     Dosage: 75 MG QD PO
     Route: 048
     Dates: start: 20060128, end: 20060227
  2. ASPIRIN [Suspect]
     Indication: CEREBROVASCULAR ACCIDENT
     Dosage: 325 MG QD PO
     Route: 048
     Dates: start: 20060128, end: 20060227

REACTIONS (1)
  - GASTROINTESTINAL HAEMORRHAGE [None]
